FAERS Safety Report 22356451 (Version 1)
Quarter: 2023Q2

REPORT INFORMATION
  Report Type: Spontaneous
  Country: NL (occurrence: NL)
  Receive Date: 20230523
  Receipt Date: 20230523
  Transmission Date: 20230721
  Serious: Yes (Hospitalization)
  Sender: FDA-Public Use
  Company Number: None

PATIENT
  Age: 69 Year
  Sex: Male
  Weight: 63 kg

DRUGS (13)
  1. PROPOFOL [Suspect]
     Active Substance: PROPOFOL
     Indication: Endoscopic retrograde cholangiopancreatography
     Dosage: ONE-OFF DONATION, IN CASE OF ERCP
     Dates: start: 20230418
  2. REMIFENTANIL HYDROCHLORIDE [Suspect]
     Active Substance: REMIFENTANIL HYDROCHLORIDE
     Indication: Endoscopic retrograde cholangiopancreatography
     Dates: start: 20230418
  3. SIMVASTATIN [Suspect]
     Active Substance: SIMVASTATIN
     Indication: Myocardial infarction
     Dosage: 1 DD 1 TABLET
     Dates: start: 20070928, end: 20230419
  4. KETAMINE HYDROCHLORIDE [Suspect]
     Active Substance: KETAMINE HYDROCHLORIDE
     Indication: Endoscopic retrograde cholangiopancreatography
     Dates: start: 20230418
  5. Acetylsalic acid tablet 80 mg/ Brand name not specified [Concomitant]
     Indication: Product used for unknown indication
     Dosage: TABLET, 80 MG (MILLIGRAM)
  6. Insulin degludec 100 E/ml solution for injection/Tresiba flextouch sol [Concomitant]
     Indication: Product used for unknown indication
     Dosage: SOLUTION FOR INJECTION, 100 UNITS/ML (UNITS PER MILLILITER)
  7. METFORMIN TABLET 850MG / Brand name not specified [Concomitant]
     Indication: Product used for unknown indication
     Dosage: TABLET, 850 MG (MILLIGRAM)
  8. METOPROLOL TABLET 50MG/ Brand name not specified [Concomitant]
     Indication: Product used for unknown indication
     Dosage: TABLET, 50 MG (MILLIGRAM)
  9. Oxycodon melting tablet 5mg/OXYNORM INSTANT ORODISP TABLET  5MG [Concomitant]
     Indication: Product used for unknown indication
     Dosage: MELTING TABLET, 5 MG (MILLIGRAM)
  10. OXYCODON TABLET MGA  10MG / OXYCONTIN TABLET MVA  10MG [Concomitant]
     Indication: Product used for unknown indication
     Dosage: MODIFIED-RELEASE TABLET, 10 MG (MILLIGRAMS)
  11. insulin aspart solution for injection 100 E/ML/ Brand name not specifi [Concomitant]
     Indication: Product used for unknown indication
     Dosage: SOLUTION FOR INJECTION, 100 UNITS /ML (UNITS PER MILLILITER)
  12. NITROGLYCERINE SPRAY SUBLING. 0,4MG/DO / Brand name not specified [Concomitant]
     Indication: Product used for unknown indication
     Dosage: SPRAY, 0.4 MG/DOSE (MILLIGRAM PER DOSE)
  13. IRBESARTAN [Concomitant]
     Active Substance: IRBESARTAN
     Indication: Product used for unknown indication
     Dosage: TABLET, 150 MG (MILLIGRAM)

REACTIONS (3)
  - Rhabdomyolysis [None]
  - Drug interaction [None]
  - Hyperkalaemia [None]

NARRATIVE: CASE EVENT DATE: 20230419
